FAERS Safety Report 5935896-5 (Version None)
Quarter: 2008Q4

REPORT INFORMATION
  Report Type: 
  Country: None (occurrence: None)
  Receive Date: 20081030
  Receipt Date: 20071025
  Transmission Date: 20090506
  Serious: No
  Sender: FDA-Public Use
  Company Number: A0689812A

PATIENT
  Age: 47 Year
  Sex: Female

DRUGS (8)
  1. IMITREX [Suspect]
     Indication: MIGRAINE
     Dosage: 1SPR VARIABLE DOSE
     Route: 045
     Dates: start: 20060101
  2. IMITREX [Suspect]
     Dosage: 4MG VARIABLE DOSE
     Route: 058
     Dates: start: 20060101
  3. LIPITOR [Concomitant]
  4. PHENOBARBITAL TAB [Concomitant]
  5. TOPAMAX [Concomitant]
  6. DITROPAN [Concomitant]
  7. DETROL [Concomitant]
  8. IMITREX [Concomitant]
     Route: 048

REACTIONS (8)
  - INJECTION SITE IRRITATION [None]
  - INJECTION SITE REACTION [None]
  - LOCAL SWELLING [None]
  - MALAISE [None]
  - NASAL DISCOMFORT [None]
  - NAUSEA [None]
  - PRURITUS [None]
  - THERAPEUTIC RESPONSE DECREASED [None]
